FAERS Safety Report 5803387-8 (Version None)
Quarter: 2008Q3

REPORT INFORMATION
  Report Type: 
  Country: None (occurrence: None)
  Receive Date: 20080708
  Receipt Date: 20080702
  Transmission Date: 20090109
  Serious: Yes (Hospitalization)
  Sender: FDA-Public Use
  Company Number: IT-BAYER-200817716GPV

PATIENT
  Age: 46 Year
  Sex: Male
  Weight: 72 kg

DRUGS (4)
  1. SORAFENIB [Suspect]
     Indication: SARCOMA
     Dosage: TOTAL DAILY DOSE: 800 MG
     Route: 048
     Dates: start: 20080320, end: 20080429
  2. DELTACORTENE [Concomitant]
     Indication: PAIN MANAGEMENT
     Route: 048
     Dates: start: 20080320
  3. OMEPRAZOLE [Concomitant]
     Indication: PROPHYLAXIS
     Route: 048
     Dates: start: 20080320
  4. TRAMADOL HCL [Concomitant]
     Indication: PAIN MANAGEMENT
     Dosage: TOTAL DAILY DOSE: 80 GTT
     Route: 048
     Dates: start: 20080320

REACTIONS (1)
  - PNEUMOTHORAX [None]
